FAERS Safety Report 25431606 (Version 2)
Quarter: 2025Q2

REPORT INFORMATION
  Report Type: Spontaneous
  Country: PT (occurrence: PT)
  Receive Date: 20250613
  Receipt Date: 20250621
  Transmission Date: 20250716
  Serious: Yes (Life-Threatening, Hospitalization, Other)
  Sender: ACCORD
  Company Number: PT-Accord-489759

PATIENT
  Age: 50 Year
  Sex: Female

DRUGS (1)
  1. LEVOTHYROXINE [Suspect]
     Active Substance: LEVOTHYROXINE
     Indication: Supplementation therapy
     Dosage: 0.125 MG/DAY

REACTIONS (7)
  - Thyrotoxic cardiomyopathy [Recovered/Resolved]
  - Cardiac failure acute [Recovered/Resolved]
  - Pulmonary embolism [Unknown]
  - Cardiogenic shock [Recovered/Resolved]
  - Mitral valve incompetence [Recovered/Resolved]
  - Ventricular tachycardia [Recovered/Resolved]
  - Cardiac ventricular thrombosis [Recovered/Resolved]
